FAERS Safety Report 16961960 (Version 1)
Quarter: 2019Q4

REPORT INFORMATION
  Report Type: Spontaneous
  Country: US (occurrence: US)
  Receive Date: 20191025
  Receipt Date: 20191025
  Transmission Date: 20200122
  Serious: No
  Sender: FDA-Public Use
  Company Number: US-VERTEX PHARMACEUTICALS-2019-010276

PATIENT
  Sex: Male

DRUGS (8)
  1. ZENPEP [Concomitant]
     Active Substance: PANCRELIPASE AMYLASE\PANCRELIPASE LIPASE\PANCRELIPASE PROTEASE
  2. AUGMENTIN [Concomitant]
     Active Substance: AMOXICILLIN\CLAVULANATE POTASSIUM
  3. CIPROFLOXACIN. [Concomitant]
     Active Substance: CIPROFLOXACIN
  4. PULMOZYME [Concomitant]
     Active Substance: DORNASE ALFA
  5. ORKAMBI [Suspect]
     Active Substance: IVACAFTOR\LUMACAFTOR
     Indication: CYSTIC FIBROSIS
     Dosage: 400/250MG, BID
     Route: 048
     Dates: start: 2015
  6. TOBI PODHALER [Concomitant]
     Active Substance: TOBRAMYCIN
  7. LIDOCAINE. [Concomitant]
     Active Substance: LIDOCAINE
  8. PANTOPRAZOLE [Concomitant]
     Active Substance: PANTOPRAZOLE

REACTIONS (1)
  - Tonsillitis streptococcal [Unknown]

NARRATIVE: CASE EVENT DATE: 2019
